FAERS Safety Report 13930751 (Version 1)
Quarter: 2017Q3

REPORT INFORMATION
  Report Type: Spontaneous
  Country: US (occurrence: US)
  Receive Date: 20170901
  Receipt Date: 20170901
  Transmission Date: 20171127
  Serious: No
  Sender: FDA-Public Use
  Company Number: US-HAEMONETICS CORP-2025479

PATIENT
  Age: 33 Year
  Weight: 61.36 kg

DRUGS (1)
  1. HAEMONETICS ANTICOAGULANT SODIUM CITRATE [Suspect]
     Active Substance: TRISODIUM CITRATE DIHYDRATE
     Indication: APHERESIS
     Route: 042
     Dates: start: 20170214, end: 20170214

REACTIONS (5)
  - Chest discomfort [None]
  - Dyspnoea [None]
  - Paraesthesia [None]
  - Paraesthesia oral [None]
  - Citrate toxicity [Recovered/Resolved]

NARRATIVE: CASE EVENT DATE: 20170214
